FAERS Safety Report 4973873-1 (Version None)
Quarter: 2006Q2

REPORT INFORMATION
  Report Type: 
  Country: None (occurrence: None)
  Receive Date: 20060410
  Receipt Date: 20060404
  Transmission Date: 20061013
  Serious: No
  Sender: FDA-Public Use
  Company Number: CHPA2006US02968

PATIENT
  Age: 75 Year
  Sex: Female
  Weight: 77.1 kg

DRUGS (1)
  1. EXCEDRIN EXTRA STRENGTH (NCH)(CAFFEINE CITRATE, ACETYLSALICYLIC ACID, [Suspect]
     Indication: BACK PAIN
     Dosage: 2 DF, SEVERAL TIMES A DAY, ORAL
     Route: 048

REACTIONS (10)
  - CATHETER RELATED INFECTION [None]
  - CEREBROVASCULAR DISORDER [None]
  - DRUG ABUSER [None]
  - DRUG HYPERSENSITIVITY [None]
  - NERVOUS SYSTEM DISORDER [None]
  - REACTION TO DRUG EXCIPIENTS [None]
  - RHINORRHOEA [None]
  - SWELLING FACE [None]
  - URINARY TRACT INFECTION [None]
  - WHITE BLOOD CELL COUNT INCREASED [None]
